FAERS Safety Report 5388791-7 (Version None)
Quarter: 2007Q3

REPORT INFORMATION
  Report Type: 
  Country: None (occurrence: None)
  Receive Date: 20070712
  Receipt Date: 20070703
  Transmission Date: 20080115
  Serious: Yes (Other)
  Sender: FDA-Public Use
  Company Number: CC07-115

PATIENT
  Age: 27 Year
  Sex: Male
  Weight: 108.8633 kg

DRUGS (1)
  1. PRIMATENE MIST [Suspect]
     Indication: ASTHMA
     Dosage: 2 ACTUATIONS AS NEEDED
     Dates: start: 20040101

REACTIONS (7)
  - ACCIDENTAL EXPOSURE [None]
  - BLINDNESS TRANSIENT [None]
  - CONTUSION [None]
  - DEVICE BREAKAGE [None]
  - EYE IRRITATION [None]
  - EYE PAIN [None]
  - PHARMACEUTICAL PRODUCT COMPLAINT [None]
